FAERS Safety Report 4293872-5 (Version None)
Quarter: 2004Q1

REPORT INFORMATION
  Report Type: 
  Country: None (occurrence: None)
  Receive Date: 20040211
  Receipt Date: 20040128
  Transmission Date: 20041129
  Serious: Yes (Death, Hospitalization)
  Sender: FDA-Public Use
  Company Number: 2004020001

PATIENT
  Age: 56 Year
  Sex: Male

DRUGS (2)
  1. PENICILLAMINE [Suspect]
     Indication: SCLERODERMA
     Dosage: 150 MG PO
     Route: 048
     Dates: start: 19990101, end: 19990101
  2. KETOPROFEN [Suspect]
     Dates: start: 19990101

REACTIONS (6)
  - BLISTER [None]
  - DERMATITIS BULLOUS [None]
  - EPIDERMOLYSIS [None]
  - INDURATION [None]
  - PAIN [None]
  - PURPURA [None]
